FAERS Safety Report 9808096 (Version 1)
Quarter: 2014Q1

REPORT INFORMATION
  Report Type: Spontaneous
  Country: US (occurrence: US)
  Receive Date: 20140110
  Receipt Date: 20140110
  Transmission Date: 20141002
  Serious: No
  Sender: FDA-Public Use
  Company Number: US-009507513-1401USA002908

PATIENT
  Age: 67 Year
  Sex: Male

DRUGS (12)
  1. TEMODAR [Suspect]
     Indication: GLIOBLASTOMA
     Dosage: 160 MG, QD
     Route: 048
     Dates: start: 20131031, end: 20131126
  2. BACTRIM [Suspect]
     Dosage: UNK
     Dates: end: 20131126
  3. TYLENOL [Concomitant]
  4. ALBUTEROL SULFATE [Concomitant]
     Route: 048
  5. SYMBICORT [Concomitant]
  6. INSULIN DETEMIR [Concomitant]
  7. KEPPRA [Concomitant]
  8. METFORMIN [Concomitant]
  9. METOPROLOL [Concomitant]
  10. OXYCODONE [Concomitant]
  11. SENNA [Concomitant]
  12. PROTONIX [Concomitant]

REACTIONS (6)
  - Vitamin B12 decreased [Recovering/Resolving]
  - Platelet transfusion [Unknown]
  - Packed red blood cell transfusion [Unknown]
  - Red blood cell count decreased [Recovering/Resolving]
  - White blood cell count decreased [Recovering/Resolving]
  - Platelet count decreased [Recovering/Resolving]
